FAERS Safety Report 26066125 (Version 1)
Quarter: 2025Q4

REPORT INFORMATION
  Report Type: Spontaneous
  Country: EU (occurrence: EU)
  Receive Date: 20251119
  Receipt Date: 20251119
  Transmission Date: 20260117
  Serious: Yes (Other)
  Sender: MYLAN
  Company Number: EU-UCBSA-2025068065

PATIENT
  Age: 35 Year
  Sex: Female

DRUGS (24)
  1. LEVETIRACETAM [Suspect]
     Active Substance: LEVETIRACETAM
     Indication: Product used for unknown indication
     Dosage: UNK
  2. LEVETIRACETAM [Suspect]
     Active Substance: LEVETIRACETAM
     Dosage: UNK
     Route: 065
  3. LEVETIRACETAM [Suspect]
     Active Substance: LEVETIRACETAM
     Dosage: UNK
     Route: 065
  4. LEVETIRACETAM [Suspect]
     Active Substance: LEVETIRACETAM
     Dosage: UNK
  5. PHENOBARBITAL [Concomitant]
     Active Substance: PHENOBARBITAL
     Indication: Product used for unknown indication
     Dosage: 200 MILLIGRAM, ONCE DAILY (QD)
  6. PHENOBARBITAL [Concomitant]
     Active Substance: PHENOBARBITAL
     Dosage: 200 MILLIGRAM, ONCE DAILY (QD)
     Route: 065
  7. PHENOBARBITAL [Concomitant]
     Active Substance: PHENOBARBITAL
     Dosage: 200 MILLIGRAM, ONCE DAILY (QD)
     Route: 065
  8. PHENOBARBITAL [Concomitant]
     Active Substance: PHENOBARBITAL
     Dosage: 200 MILLIGRAM, ONCE DAILY (QD)
  9. LAMOTRIGINE [Concomitant]
     Active Substance: LAMOTRIGINE
     Indication: Product used for unknown indication
     Dosage: 25 MILLIGRAM, ONCE DAILY (QD)
  10. LAMOTRIGINE [Concomitant]
     Active Substance: LAMOTRIGINE
     Dosage: 25 MILLIGRAM, ONCE DAILY (QD)
     Route: 065
  11. LAMOTRIGINE [Concomitant]
     Active Substance: LAMOTRIGINE
     Dosage: 25 MILLIGRAM, ONCE DAILY (QD)
     Route: 065
  12. LAMOTRIGINE [Concomitant]
     Active Substance: LAMOTRIGINE
     Dosage: 25 MILLIGRAM, ONCE DAILY (QD)
  13. PERAMPANEL [Concomitant]
     Active Substance: PERAMPANEL
     Indication: Product used for unknown indication
     Dosage: 8 MILLIGRAM, ONCE DAILY (QD)
  14. PERAMPANEL [Concomitant]
     Active Substance: PERAMPANEL
     Dosage: 8 MILLIGRAM, ONCE DAILY (QD)
     Route: 065
  15. PERAMPANEL [Concomitant]
     Active Substance: PERAMPANEL
     Dosage: 8 MILLIGRAM, ONCE DAILY (QD)
     Route: 065
  16. PERAMPANEL [Concomitant]
     Active Substance: PERAMPANEL
     Dosage: 8 MILLIGRAM, ONCE DAILY (QD)
  17. OXCARBAZEPINE [Concomitant]
     Active Substance: OXCARBAZEPINE
     Indication: Product used for unknown indication
     Dosage: 1500 MILLIGRAM
  18. OXCARBAZEPINE [Concomitant]
     Active Substance: OXCARBAZEPINE
     Dosage: 1500 MILLIGRAM
     Route: 065
  19. OXCARBAZEPINE [Concomitant]
     Active Substance: OXCARBAZEPINE
     Dosage: 1500 MILLIGRAM
     Route: 065
  20. OXCARBAZEPINE [Concomitant]
     Active Substance: OXCARBAZEPINE
     Dosage: 1500 MILLIGRAM
  21. CLOBAZAM [Concomitant]
     Active Substance: CLOBAZAM
     Indication: Product used for unknown indication
     Dosage: 10 MILLIGRAM, ONCE DAILY (QD)
  22. CLOBAZAM [Concomitant]
     Active Substance: CLOBAZAM
     Dosage: 10 MILLIGRAM, ONCE DAILY (QD)
     Route: 065
  23. CLOBAZAM [Concomitant]
     Active Substance: CLOBAZAM
     Dosage: 10 MILLIGRAM, ONCE DAILY (QD)
     Route: 065
  24. CLOBAZAM [Concomitant]
     Active Substance: CLOBAZAM
     Dosage: 10 MILLIGRAM, ONCE DAILY (QD)

REACTIONS (12)
  - Petit mal epilepsy [Unknown]
  - Status epilepticus [Unknown]
  - Seizure [Unknown]
  - Hallucination, visual [Unknown]
  - Leukopenia [Unknown]
  - Mental disorder [Unknown]
  - Behaviour disorder [Unknown]
  - Atonic seizures [Unknown]
  - Catheter site infection [Unknown]
  - Sleep disorder [Unknown]
  - Aggression [Unknown]
  - Gastrostomy [Unknown]

NARRATIVE: CASE EVENT DATE: 20211001
